FAERS Safety Report 10053705 (Version 2)
Quarter: 2014Q4

REPORT INFORMATION
  Report Type: Report from Study
  Country: IT (occurrence: IT)
  Receive Date: 20140402
  Receipt Date: 20141017
  Transmission Date: 20150528
  Serious: Yes (Life-Threatening, Hospitalization)
  Sender: FDA-Public Use
  Company Number: PHHO2014IT004662

PATIENT
  Age: 89 Year
  Sex: Female
  Weight: 70 kg

DRUGS (11)
  1. FOSAMAX [Concomitant]
     Active Substance: ALENDRONATE SODIUM
     Dosage: 1 DF WEEKLY
  2. LASIX [Concomitant]
     Active Substance: FUROSEMIDE
     Dosage: 0.5 DF DAILY
  3. AEROSOL SPITZNER [Concomitant]
     Dosage: BRONCOVALEAS+FLUIMUCIL IN THE EVENING
  4. AMN107 [Suspect]
     Active Substance: NILOTINIB
     Indication: CHRONIC MYELOID LEUKAEMIA
     Dosage: 200 MG, UNK
     Route: 048
     Dates: start: 20121217, end: 20140316
  5. FLUIMUCIL [Concomitant]
     Active Substance: ACETYLCYSTEINE
     Indication: PRODUCT USED FOR UNKNOWN INDICATION
  6. LEVOFLOXACIN. [Concomitant]
     Active Substance: LEVOFLOXACIN
     Dosage: 1 DF DAILY FOR 1 WEEK
  7. LEXOTAN [Concomitant]
     Active Substance: BROMAZEPAM
     Dosage: 10 DRP, PRN
  8. TACHIDOL [Concomitant]
     Active Substance: ACETAMINOPHEN\CODEINE PHOSPHATE
     Dosage: 1 SACHET TWICE DAILY
  9. RANITIDINE [Concomitant]
     Active Substance: RANITIDINE\RANITIDINE HYDROCHLORIDE
     Dosage: 1 DF IN THE MORNING
  10. NEO LOTAN PLUS [Concomitant]
     Dosage: 0.5 DF DAILY
  11. FAXINE [Concomitant]
     Dosage: 1 DF DAILY

REACTIONS (2)
  - Acute pulmonary oedema [Recovered/Resolved]
  - Acute myocardial infarction [Recovered/Resolved]

NARRATIVE: CASE EVENT DATE: 20140316
